FAERS Safety Report 9324144 (Version 1)
Quarter: 2013Q2

REPORT INFORMATION
  Report Type: Spontaneous
  Country: BR (occurrence: BR)
  Receive Date: 20130603
  Receipt Date: 20130603
  Transmission Date: 20140414
  Serious: Yes (Other)
  Sender: FDA-Public Use
  Company Number: BR-SANOFI-AVENTIS-2013SA053703

PATIENT
  Sex: Female

DRUGS (4)
  1. ARAVA [Suspect]
     Indication: RHEUMATOID ARTHRITIS
     Route: 065
  2. PREDNISONE [Suspect]
     Indication: RHEUMATOID ARTHRITIS
     Route: 065
  3. METHOTREXATE [Concomitant]
     Indication: RHEUMATOID ARTHRITIS
  4. REUQUINOL [Concomitant]
     Indication: RHEUMATOID ARTHRITIS

REACTIONS (5)
  - Weight increased [Unknown]
  - Gastritis [Unknown]
  - Respiratory disorder [Unknown]
  - Sinusitis [Unknown]
  - Rhinitis [Unknown]
